FAERS Safety Report 17564202 (Version 1)
Quarter: 2020Q1

REPORT INFORMATION
  Report Type: Report from Study
  Country: None (occurrence: NZ)
  Receive Date: 20200320
  Receipt Date: 20200320
  Transmission Date: 20200409
  Serious: Yes (Other)
  Sender: FDA-Public Use
  Company Number: NZ-ABBVIE-20K-118-3321860-00

PATIENT
  Sex: Male

DRUGS (1)
  1. HUMIRA [Suspect]
     Active Substance: ADALIMUMAB
     Indication: PSORIASIS
     Route: 058
     Dates: start: 20191207

REACTIONS (4)
  - Loss of consciousness [Unknown]
  - Psoriasis [Recovering/Resolving]
  - Stress [Recovering/Resolving]
  - Accident at work [Recovered/Resolved]

NARRATIVE: CASE EVENT DATE: 2020
